FAERS Safety Report 8374394-9 (Version None)
Quarter: 2012Q2

REPORT INFORMATION
  Report Type: 
  Country: None (occurrence: None)
  Receive Date: 20120521
  Receipt Date: 20120517
  Transmission Date: 20120825
  Serious: No
  Sender: FDA-Public Use
  Company Number: US-PFIZER INC-2012121031

PATIENT
  Sex: Female

DRUGS (2)
  1. LYRICA [Suspect]
     Dosage: 100 MG, UNK
     Route: 048
  2. LYRICA [Suspect]
     Dosage: 50 MG, UNK
     Route: 048

REACTIONS (1)
  - NAUSEA [None]
